FAERS Safety Report 7245957-9 (Version None)
Quarter: 2011Q1

REPORT INFORMATION
  Report Type: 
  Country: None (occurrence: None)
  Receive Date: 20110126
  Receipt Date: 20101207
  Transmission Date: 20110831
  Serious: Yes (Hospitalization)
  Sender: FDA-Public Use
  Company Number: US-BAYER-201037537NA

PATIENT
  Sex: Female
  Weight: 66.213 kg

DRUGS (9)
  1. RANITIDINE [Concomitant]
  2. MOTRIN [Concomitant]
     Dosage: 400 MG, UNK
  3. OMEPRAZOLE [Concomitant]
     Indication: DYSPEPSIA
     Dosage: 20 MG, UNK
  4. YASMIN [Suspect]
     Indication: CONTRACEPTION
  5. OCELLA [Suspect]
     Indication: ACNE
  6. YASMIN [Suspect]
     Indication: ACNE
     Dosage: UNK
     Dates: start: 20050101, end: 20070101
  7. FLONASE [Concomitant]
     Indication: SEASONAL ALLERGY
  8. YAZ [Suspect]
     Indication: ACNE
  9. YASMIN [Suspect]
     Indication: DYSMENORRHOEA

REACTIONS (4)
  - DYSPNOEA [None]
  - MUSCULOSKELETAL PAIN [None]
  - PLEURITIC PAIN [None]
  - PULMONARY EMBOLISM [None]
